FAERS Safety Report 7531414-9 (Version None)
Quarter: 2011Q2

REPORT INFORMATION
  Report Type: 
  Country: None (occurrence: None)
  Receive Date: 20110608
  Receipt Date: 20110606
  Transmission Date: 20111010
  Serious: Yes (Hospitalization)
  Sender: FDA-Public Use
  Company Number: IT-SANOFI-AVENTIS-2011SA035236

PATIENT
  Age: 87 Year
  Sex: Female

DRUGS (7)
  1. LANSOX [Concomitant]
     Route: 048
  2. SILVER NITRATE [Concomitant]
     Route: 065
  3. LASIX [Suspect]
     Route: 048
     Dates: start: 20110510, end: 20110519
  4. LANOXIN [Concomitant]
     Route: 048
  5. ASPIRIN [Concomitant]
     Dosage: DOSE:1 UNIT(S)
     Route: 048
  6. ALLOPURINOL [Concomitant]
     Route: 048
  7. CALCIUM CARBONATE [Concomitant]
     Dosage: DOSE:1 UNIT(S)
     Route: 048

REACTIONS (5)
  - MALAISE [None]
  - RENAL FAILURE ACUTE [None]
  - ACUTE RESPIRATORY FAILURE [None]
  - DEHYDRATION [None]
  - DYSPNOEA [None]
